FAERS Safety Report 6407648-3 (Version None)
Quarter: 2009Q4

REPORT INFORMATION
  Report Type: 
  Country: None (occurrence: None)
  Receive Date: 20091020
  Receipt Date: 20091014
  Transmission Date: 20100525
  Serious: Yes (Disabling, Other)
  Sender: FDA-Public Use
  Company Number: PHEH2009US08313

PATIENT
  Sex: Female

DRUGS (11)
  1. FEMARA [Suspect]
     Indication: BREAST CANCER
     Dosage: 2.5 MG, QD
     Route: 048
     Dates: start: 20071025, end: 20080307
  2. ASPIRIN [Concomitant]
  3. PLAVIX [Concomitant]
  4. VERAPAMIL [Concomitant]
  5. NEXIUM [Concomitant]
  6. SINGULAIR [Concomitant]
  7. PRAVACHOL [Concomitant]
  8. ALDACTONE [Concomitant]
  9. CLONIDINE [Concomitant]
  10. ALBUTEROL [Concomitant]
  11. TRAMADOL HCL [Concomitant]

REACTIONS (7)
  - BALANCE DISORDER [None]
  - FALL [None]
  - FEELING ABNORMAL [None]
  - MUSCULAR WEAKNESS [None]
  - PARAPARESIS [None]
  - UPPER LIMB FRACTURE [None]
  - WHEELCHAIR USER [None]
